FAERS Safety Report 17190941 (Version 2)
Quarter: 2021Q1

REPORT INFORMATION
  Report Type: Report from Study
  Country: IT (occurrence: IT)
  Receive Date: 20191223
  Receipt Date: 20210309
  Transmission Date: 20210419
  Serious: Yes (Other)
  Sender: FDA-Public Use
  Company Number: IT-BAYER-2019-228735

PATIENT
  Age: 29 Year
  Sex: Female

DRUGS (2)
  1. NAPROXEN. [Suspect]
     Active Substance: NAPROXEN
     Indication: TOOTH ABSCESS
     Dosage: 1 DF
     Route: 048
     Dates: start: 20191113, end: 20191113
  2. AMOXICILLINA/ACIDO CLAVULANICO [AMOXICILLIN SODIUM;CLAVULANATE POT [Suspect]
     Active Substance: AMOXICILLIN\CLAVULANATE POTASSIUM
     Indication: TOOTH ABSCESS
     Dosage: 1 DF
     Route: 048
     Dates: start: 20191113, end: 20191113

REACTIONS (4)
  - Rash [Recovering/Resolving]
  - Periorbital oedema [Recovering/Resolving]
  - Lip oedema [Not Recovered/Not Resolved]
  - Lip erythema [Recovering/Resolving]

NARRATIVE: CASE EVENT DATE: 20191113
